FAERS Safety Report 15435619 (Version 2)
Quarter: 2018Q4

REPORT INFORMATION
  Report Type: Report from Study
  Country: MW (occurrence: MW)
  Receive Date: 20180927
  Receipt Date: 20181009
  Transmission Date: 20190204
  Serious: Yes (Death, Life-Threatening, Hospitalization, Other)
  Sender: FDA-Public Use
  Company Number: MW-BRISTOL-MYERS SQUIBB COMPANY-BMS-2015-047172

PATIENT
  Age: 35 Year
  Sex: Male
  Weight: 59.1 kg

DRUGS (4)
  1. PACLITAXEL. [Suspect]
     Active Substance: PACLITAXEL
     Indication: KAPOSI^S SARCOMA AIDS RELATED
     Dosage: 168 MG, QCYCLE
     Route: 065
     Dates: start: 20150910, end: 20160104
  2. PACLITAXEL. [Suspect]
     Active Substance: PACLITAXEL
     Indication: PRODUCT USED FOR UNKNOWN INDICATION
     Dosage: 123 MG, QCYCLE
     Route: 065
     Dates: start: 20160104, end: 20160104
  3. ETOPOSIDE. [Suspect]
     Active Substance: ETOPOSIDE
     Indication: KAPOSI^S SARCOMA AIDS RELATED
     Dosage: 100 MG, UNK
     Route: 048
     Dates: start: 20150324
  4. EFAVIRENZ, EMTRICITABINE, AND TENOFOVIR DISOPROXIL FUMARATE [Suspect]
     Active Substance: EFAVIRENZ\EMTRICITABINE\TENOFOVIR DISOPROXIL FUMARATE
     Indication: ACQUIRED IMMUNODEFICIENCY SYNDROME
     Dosage: 110 MG, QD
     Route: 048
     Dates: start: 20150324, end: 20160201

REACTIONS (2)
  - Pneumonia bacterial [Fatal]
  - Neutropenia [Unknown]

NARRATIVE: CASE EVENT DATE: 20150708
